FAERS Safety Report 7542777-2 (Version None)
Quarter: 2011Q2

REPORT INFORMATION
  Report Type: 
  Country: None (occurrence: None)
  Receive Date: 20110613
  Receipt Date: 20110602
  Transmission Date: 20111010
  Serious: Yes (Other)
  Sender: FDA-Public Use
  Company Number: B0725031A

PATIENT
  Age: 54 Year
  Sex: Male

DRUGS (8)
  1. BENICAR [Concomitant]
     Indication: HYPERTENSION
     Dosage: 40MG PER DAY
     Dates: start: 20090316
  2. TRICOR [Concomitant]
     Dosage: 145MG PER DAY
     Dates: start: 20090316
  3. ISENTRESS [Concomitant]
     Indication: HIV INFECTION
     Dosage: 400MG TWICE PER DAY
     Dates: start: 20080401
  4. MARAVIROC [Suspect]
     Dosage: 150MG PER DAY
     Route: 048
     Dates: start: 20110503
  5. ZETIA [Concomitant]
     Dosage: 10MG PER DAY
     Dates: start: 20090316
  6. ATIVAN [Concomitant]
     Indication: ANXIETY
     Dates: start: 20100624
  7. MARAVIROC [Suspect]
     Indication: HIV INFECTION
     Dosage: 300MG PER DAY
     Route: 048
     Dates: start: 20100126, end: 20110503
  8. SEROSTIM [Concomitant]
     Dosage: 25CC PER DAY
     Dates: start: 20090316

REACTIONS (2)
  - HEPATIC CIRRHOSIS [None]
  - HEPATITIS C [None]
